FAERS Safety Report 14316187 (Version 3)
Quarter: 2020Q4

REPORT INFORMATION
  Report Type: Spontaneous
  Country: CA (occurrence: CA)
  Receive Date: 20171222
  Receipt Date: 20201104
  Transmission Date: 20210113
  Serious: Yes (Life-Threatening, Hospitalization, Other)
  Sender: FDA-Public Use
  Company Number: CA-APOTEX-2017AP022655

PATIENT
  Age: 51 Year
  Sex: Male

DRUGS (25)
  1. GLYCINE. [Suspect]
     Active Substance: GLYCINE
     Indication: OVERDOSE
     Dosage: UNK
     Route: 065
  2. METHYLENE BLUE. [Suspect]
     Active Substance: METHYLENE BLUE
     Indication: OVERDOSE
     Dosage: 80 MILLIGRAM
     Route: 065
  3. NOREPINEPHRINE. [Suspect]
     Active Substance: NOREPINEPHRINE
     Indication: OVERDOSE
     Dosage: UNK
     Route: 065
  4. VALINE [Suspect]
     Active Substance: VALINE
     Indication: OVERDOSE
     Dosage: UNK
     Route: 065
  5. VERAPAMIL [Suspect]
     Active Substance: VERAPAMIL HYDROCHLORIDE
     Indication: OVERDOSE
     Dosage: 19.2 MILLIGRAM, SUSTAINED RELEASE, TOTAL
     Route: 048
  6. CALCIUM CARBONATE. [Suspect]
     Active Substance: CALCIUM CARBONATE
     Indication: OVERDOSE
     Dosage: UNK
     Route: 065
  7. GLUTAMIC ACID [Suspect]
     Active Substance: GLUTAMIC ACID
     Indication: OVERDOSE
     Dosage: UNK
     Route: 042
  8. HISTIDINE [Suspect]
     Active Substance: HISTIDINE
     Indication: OVERDOSE
     Dosage: UNK
     Route: 065
  9. LYSINE [Suspect]
     Active Substance: LYSINE
     Indication: OVERDOSE
     Dosage: UNK
     Route: 065
  10. THREONINE [Suspect]
     Active Substance: THREONINE
     Indication: OVERDOSE
     Dosage: UNK
     Route: 065
  11. EPINEPHRINE. [Suspect]
     Active Substance: EPINEPHRINE
     Indication: OVERDOSE
     Dosage: UNK
     Route: 065
  12. VASOPRESSIN. [Suspect]
     Active Substance: VASOPRESSIN
     Indication: OVERDOSE
     Dosage: UNK
     Route: 065
  13. MAGNESIUM CHLORIDE ANHYDROUS [Suspect]
     Active Substance: MAGNESIUM CHLORIDE ANHYDROUS
     Indication: OVERDOSE
     Dosage: UNK
     Route: 065
  14. POTASSIUM CHLORIDE. [Suspect]
     Active Substance: POTASSIUM CHLORIDE
     Indication: OVERDOSE
     Dosage: UNK
     Route: 065
  15. GLUCAGON. [Suspect]
     Active Substance: GLUCAGON
     Indication: OVERDOSE
     Dosage: 5 MILLIGRAM
     Route: 065
  16. GLUCOSE [Suspect]
     Active Substance: DEXTROSE
     Indication: OVERDOSE
     Dosage: UNK
     Route: 065
  17. APO-VERAP SR [Suspect]
     Active Substance: VERAPAMIL HYDROCHLORIDE
     Indication: PRODUCT USED FOR UNKNOWN INDICATION
     Dosage: 19.2 G, UNK
     Route: 048
  18. DIPHENHYDRAMINE. [Suspect]
     Active Substance: DIPHENHYDRAMINE
     Indication: OVERDOSE
     Dosage: 200 MG, UNK, TOTAL
     Route: 048
  19. ATROPINE SULFATE. [Suspect]
     Active Substance: ATROPINE SULFATE
     Indication: OVERDOSE
     Dosage: UNK
     Route: 065
  20. L-ASPARTIC ACID [Suspect]
     Active Substance: ASPARTIC ACID
     Indication: OVERDOSE
     Dosage: UNK
     Route: 065
  21. ACTIVATED CHARCOAL. [Suspect]
     Active Substance: ACTIVATED CHARCOAL
     Indication: OVERDOSE
     Dosage: UNK
     Route: 065
  22. INSULIN [Suspect]
     Active Substance: INSULIN NOS
     Indication: OVERDOSE
     Dosage: 60 INTERNATIONAL UNIT
     Route: 065
  23. PROLINE [Suspect]
     Active Substance: PROLINE
     Indication: OVERDOSE
     Dosage: UNK
     Route: 065
  24. VERAPAMIL [Suspect]
     Active Substance: VERAPAMIL HYDROCHLORIDE
     Indication: HYPERTENSION
     Dosage: 19.2 MILLIGRAM, TOTAL
     Route: 048
  25. PHENYLALANINE [Suspect]
     Active Substance: PHENYLALANINE
     Indication: OVERDOSE
     Dosage: UNK
     Route: 065

REACTIONS (15)
  - Cardiogenic shock [Recovered/Resolved]
  - Vasoplegia syndrome [Recovered/Resolved]
  - Lactic acidosis [Recovered/Resolved]
  - Overdose [Recovered/Resolved]
  - Coma scale abnormal [Recovered/Resolved]
  - Compartment syndrome [Recovered/Resolved]
  - Bradycardia [Recovered/Resolved]
  - Hyperkalaemia [Recovered/Resolved]
  - Rhabdomyolysis [Recovered/Resolved]
  - Ileus [Recovered/Resolved]
  - Condition aggravated [Recovered/Resolved]
  - Coma [Recovered/Resolved]
  - Pulse absent [Recovered/Resolved]
  - Cardiac arrest [Recovered/Resolved]
  - Hypotension [Recovered/Resolved]
